FAERS Safety Report 24075270 (Version 5)
Quarter: 2025Q4

REPORT INFORMATION
  Report Type: Spontaneous
  Country: JP (occurrence: JP)
  Receive Date: 20240710
  Receipt Date: 20251017
  Transmission Date: 20260119
  Serious: No
  Sender: PFIZER
  Company Number: JP-PFIZER INC-PV202400086990

PATIENT
  Age: 13 Year
  Sex: Male
  Weight: 39 kg

DRUGS (2)
  1. NGENLA [Suspect]
     Active Substance: SOMATROGON-GHLA
     Indication: Short stature
     Dosage: 24 MG, WEEKLY
     Route: 058
     Dates: start: 20230215
  2. NGENLA [Suspect]
     Active Substance: SOMATROGON-GHLA
     Indication: Growth hormone deficiency

REACTIONS (2)
  - Injection site pain [Recovered/Resolved]
  - Injection site haemorrhage [Recovered/Resolved]

NARRATIVE: CASE EVENT DATE: 20240523
